FAERS Safety Report 5967674-5 (Version None)
Quarter: 2008Q4

REPORT INFORMATION
  Report Type: 
  Country: None (occurrence: None)
  Receive Date: 20081126
  Receipt Date: 20081120
  Transmission Date: 20090506
  Serious: Yes (Death, Hospitalization, Other)
  Sender: FDA-Public Use
  Company Number: PHHO2007PL08866

PATIENT
  Sex: Female
  Weight: 56 kg

DRUGS (27)
  1. TASIGNA [Suspect]
     Indication: CHRONIC MYELOID LEUKAEMIA
     Dosage: 800MG
     Route: 048
     Dates: start: 20070420, end: 20070507
  2. ENARENAL [Concomitant]
  3. EFFOX LONG [Concomitant]
  4. BISOCARD [Concomitant]
  5. TERTENSIF - SLOW RELEASE [Concomitant]
  6. CHOLESTIL [Concomitant]
  7. KALDYUM [Concomitant]
  8. MAGNE-B6 [Concomitant]
  9. CALCIUM PLUS [Concomitant]
  10. ZYRTEC [Concomitant]
  11. CEFUROXIME [Concomitant]
  12. ORUNGAL [Concomitant]
  13. CLEMASTINE FUMARATE [Concomitant]
  14. GLUCOSE [Concomitant]
  15. SODIUM CHLORIDE 0.9% [Concomitant]
  16. RINGER'S [Concomitant]
  17. CEFTAZIDIME [Concomitant]
  18. FLUCONAZOLE [Concomitant]
  19. ORNITHINE ASPARTATE [Concomitant]
  20. MANNITOL [Concomitant]
  21. PARACETAMOL [Suspect]
  22. TRAMADOL HCL [Concomitant]
  23. CIPROFLOXACIN [Concomitant]
  24. CAPTOPRIL [Concomitant]
  25. AMPHOTERICIN B [Concomitant]
  26. CHLORHEXIDINE GLUCONATE [Concomitant]
  27. VALPROATE SODIUM [Concomitant]

REACTIONS (6)
  - CHRONIC MYELOID LEUKAEMIA [None]
  - ELECTROCARDIOGRAM QT PROLONGED [None]
  - EXTRADURAL HAEMATOMA [None]
  - GASTROINTESTINAL HAEMORRHAGE [None]
  - LOSS OF CONSCIOUSNESS [None]
  - THROMBOCYTOPENIA [None]
